FAERS Safety Report 10602905 (Version 1)
Quarter: 2014Q4

REPORT INFORMATION
  Report Type: Spontaneous
  Country: FR (occurrence: FR)
  Receive Date: 20141124
  Receipt Date: 20141124
  Transmission Date: 20150529
  Serious: Yes (Other)
  Sender: FDA-Public Use
  Company Number: FR-TEVA-523106ISR

PATIENT
  Sex: Female

DRUGS (1)
  1. COPAXONE [Suspect]
     Active Substance: GLATIRAMER ACETATE
     Dosage: 20 MILLIGRAM DAILY;
     Dates: start: 20140218, end: 201408

REACTIONS (3)
  - Gait disturbance [Recovering/Resolving]
  - Spinal cord injury [Recovering/Resolving]
  - Multiple sclerosis relapse [Recovering/Resolving]

NARRATIVE: CASE EVENT DATE: 2014
